FAERS Safety Report 18693998 (Version 1)
Quarter: 2021Q1

REPORT INFORMATION
  Report Type: Report from Study
  Country: CA (occurrence: CA)
  Receive Date: 20210104
  Receipt Date: 20210104
  Transmission Date: 20210419
  Serious: Yes (Other)
  Sender: FDA-Public Use
  Company Number: NVSC2020CA345732

PATIENT
  Age: 3 Year
  Sex: Female
  Weight: 14.8 kg

DRUGS (3)
  1. AVAMYS [Concomitant]
     Active Substance: FLUTICASONE FUROATE
     Indication: PROPHYLAXIS
     Dosage: 1 INH, DAILY
     Route: 055
  2. TRAMETINIB [Suspect]
     Active Substance: TRAMETINIB
     Indication: NEUROFIBROMA
     Dosage: 0.5 MG, QD
     Route: 048
     Dates: start: 20191107
  3. AVAMYS [Concomitant]
     Active Substance: FLUTICASONE FUROATE
     Indication: NASAL CONGESTION

REACTIONS (1)
  - Incorrect route of product administration [Unknown]

NARRATIVE: CASE EVENT DATE: 20201227
